FAERS Safety Report 4314359-7 (Version None)
Quarter: 2004Q1

REPORT INFORMATION
  Report Type: 
  Country: None (occurrence: None)
  Receive Date: 20040308
  Receipt Date: 20040223
  Transmission Date: 20041129
  Serious: Yes (Other)
  Sender: FDA-Public Use
  Company Number: 2004012237

PATIENT
  Sex: Male

DRUGS (5)
  1. SINEQUAN [Suspect]
     Indication: INSOMNIA
     Dosage: 50 MG, ORAL
     Route: 048
     Dates: start: 19890401, end: 19890401
  2. NAVANE [Suspect]
     Indication: INSOMNIA
     Dosage: ORAL
     Route: 048
     Dates: start: 19890420, end: 19890101
  3. NEURONTIN [Suspect]
     Indication: INSOMNIA
     Dosage: 300 MG (DAILY), ORAL
     Route: 048
     Dates: start: 20040201
  4. NEURONTIN [Suspect]
     Indication: TINNITUS
     Dosage: 300 MG (DAILY), ORAL
     Route: 048
     Dates: start: 20040201
  5. ROFECOXIB [Suspect]
     Indication: ILL-DEFINED DISORDER

REACTIONS (4)
  - DRUG INEFFECTIVE [None]
  - FACIAL PALSY [None]
  - INSOMNIA [None]
  - TINNITUS [None]
